FAERS Safety Report 7415936-7 (Version None)
Quarter: 2011Q2

REPORT INFORMATION
  Report Type: 
  Country: None (occurrence: None)
  Receive Date: 20110414
  Receipt Date: 20110408
  Transmission Date: 20111010
  Serious: Yes (Disabling)
  Sender: FDA-Public Use
  Company Number: PHHY2011GB29219

PATIENT
  Age: 70 Year
  Sex: Male
  Weight: 76 kg

DRUGS (6)
  1. ITRACONAZOLE [Suspect]
     Indication: RESPIRATORY TRACT INFECTION FUNGAL
     Dosage: 200 MG, BID
     Route: 048
     Dates: start: 20100501, end: 20101125
  2. DIGOXIN [Concomitant]
  3. ASPIRIN [Concomitant]
  4. ALBUTEROL SULFATE AUTOHALER [Concomitant]
  5. TIOTROPIUM BROMIDE [Concomitant]
     Dosage: UNK
  6. SERETIDE [Concomitant]
     Dosage: UNK

REACTIONS (1)
  - COLOUR BLINDNESS [None]
